FAERS Safety Report 7864957-9 (Version None)
Quarter: 2011Q4

REPORT INFORMATION
  Report Type: 
  Country: None (occurrence: None)
  Receive Date: 20111028
  Receipt Date: 20111018
  Transmission Date: 20120403
  Serious: Yes (Hospitalization, Other)
  Sender: FDA-Public Use
  Company Number: US-BAYER-2011-003218

PATIENT
  Age: 22 Year
  Sex: Female

DRUGS (12)
  1. UNKNOWN [Concomitant]
     Dosage: UNK
     Dates: start: 20071119, end: 20080214
  2. KETOROLAC TROMETHAMINE [Concomitant]
     Dosage: 30 MG, UNK
     Dates: start: 20080308
  3. NEOCON [Concomitant]
     Dosage: UNK
     Dates: start: 20080313, end: 20081212
  4. ACETAMINOPHEN [Concomitant]
     Dosage: UNK
     Dates: start: 19990101
  5. IBUPROFEN (ADVIL) [Concomitant]
     Dosage: UNK
     Dates: start: 19990101
  6. NAPROXEN SODIUM AND PSEUDOEPHEDRINE HYDROCHLORIDE [Concomitant]
     Dosage: 550 MG, UNK
     Dates: start: 20071119, end: 20080313
  7. PREVACID [Concomitant]
  8. YASMIN [Suspect]
     Indication: MENSTRUAL CYCLE MANAGEMENT
  9. EXCEDRIN (MIGRAINE) [Concomitant]
     Dosage: UNK
     Dates: start: 19990101
  10. ALEVE [Concomitant]
     Dosage: UNK
     Dates: start: 19990101
  11. YASMIN [Suspect]
     Indication: PREMENSTRUAL SYNDROME
     Dosage: UNK
     Dates: start: 20070101, end: 20080213
  12. PEPCID [Concomitant]
     Dosage: UNK
     Dates: start: 20080308

REACTIONS (16)
  - GALLBLADDER OBSTRUCTION [None]
  - PEPTIC ULCER [None]
  - BLOOD ALKALINE PHOSPHATASE INCREASED [None]
  - ABDOMINAL PAIN [None]
  - DRUG DOSE OMISSION [None]
  - CHOLECYSTITIS CHRONIC [None]
  - GALLBLADDER DISORDER [None]
  - PANCREATITIS [None]
  - ASPARTATE AMINOTRANSFERASE INCREASED [None]
  - BACK PAIN [None]
  - METRORRHAGIA [None]
  - DUODENITIS [None]
  - GALLBLADDER INJURY [None]
  - GASTRIC ULCER [None]
  - BLOOD BILIRUBIN INCREASED [None]
  - CHOLELITHIASIS [None]
